FAERS Safety Report 18569783 (Version 1)
Quarter: 2020Q4

REPORT INFORMATION
  Report Type: Spontaneous
  Country: US (occurrence: US)
  Receive Date: 20201202
  Receipt Date: 20201202
  Transmission Date: 20210114
  Serious: Yes (Death)
  Sender: FDA-Public Use
  Company Number: None

PATIENT
  Age: 76 Year
  Sex: Female
  Weight: 148.95 kg

DRUGS (2)
  1. BAMLANIVIMAB. [Suspect]
     Active Substance: BAMLANIVIMAB
     Indication: COVID-19
     Dosage: ?          OTHER FREQUENCY:X1;?
     Route: 041
  2. SODIUM CHLORIDE 0.9% 250ML [Concomitant]
     Dates: start: 20201201, end: 20201201

REACTIONS (1)
  - Seizure [None]

NARRATIVE: CASE EVENT DATE: 20201201
